FAERS Safety Report 8322367-4 (Version None)
Quarter: 2012Q2

REPORT INFORMATION
  Report Type: 
  Country: None (occurrence: None)
  Receive Date: 20120430
  Receipt Date: 20120424
  Transmission Date: 20120825
  Serious: Yes (Hospitalization)
  Sender: FDA-Public Use
  Company Number: US-ROXANE LABORATORIES, INC.-2012-RO-01119RO

PATIENT
  Sex: Female

DRUGS (14)
  1. ELOTUZUMAB [Suspect]
     Indication: MULTIPLE MYELOMA
     Route: 042
     Dates: start: 20120208, end: 20120218
  2. LENALIDOMIDE [Suspect]
     Indication: MULTIPLE MYELOMA
     Dosage: 5 MG
     Route: 048
     Dates: start: 20120208, end: 20120218
  3. ZOFRAN [Concomitant]
  4. ZEMPLAR [Concomitant]
  5. RENAL TAB [Concomitant]
  6. ZOLOFT [Concomitant]
  7. ATIVAN [Concomitant]
  8. FOSRENOL [Concomitant]
  9. DEXAMETHASONE [Suspect]
     Indication: MULTIPLE MYELOMA
     Dosage: 28 MG
     Route: 048
     Dates: start: 20120208, end: 20120218
  10. PRILOSEC [Concomitant]
  11. EPOGEN [Concomitant]
     Dates: start: 20110914
  12. PROTONIX [Concomitant]
  13. AMBIEN [Concomitant]
  14. OXYCODONE HCL [Concomitant]

REACTIONS (3)
  - BLOOD CULTURE POSITIVE [None]
  - PYREXIA [None]
  - INFECTION [None]
